FAERS Safety Report 8066592-9 (Version None)
Quarter: 2012Q1

REPORT INFORMATION
  Report Type: 
  Country: None (occurrence: None)
  Receive Date: 20120124
  Receipt Date: 20120118
  Transmission Date: 20120608
  Serious: Yes (Disabling)
  Sender: FDA-Public Use
  Company Number: PHHY2011IT80662

PATIENT
  Sex: Male

DRUGS (8)
  1. ATENOLOL [Concomitant]
     Dosage: 50 MG, UNK
  2. DELORAZEPAM [Concomitant]
  3. VALACICLOVIR [Concomitant]
     Dosage: 1 G, UNK
     Route: 048
  4. SULFAMETHOXAZOLE AND TRIMETHOPRIM [Concomitant]
     Dosage: 1920 MG, UNK
     Route: 048
  5. MICONAZOLE [Concomitant]
  6. LANSOPRAZOLE [Concomitant]
     Dosage: 30 MG, UNK
     Route: 048
  7. CHLORHEXIDINE GLUCONATE [Concomitant]
  8. ZOMETA [Suspect]
     Indication: MULTIPLE MYELOMA
     Dosage: 4 MG, CYCLIC
     Route: 042
     Dates: start: 20110305, end: 20110711

REACTIONS (1)
  - OSTEONECROSIS OF JAW [None]
